FAERS Safety Report 23237090 (Version 1)
Quarter: 2023Q4

REPORT INFORMATION
  Report Type: Spontaneous
  Country: FR (occurrence: FR)
  Receive Date: 20231128
  Receipt Date: 20231128
  Transmission Date: 20240109
  Serious: Yes (Hospitalization)
  Sender: FDA-Public Use
  Company Number: FR-BAUSCH-BL-2023-017396

PATIENT
  Age: 64 Year
  Sex: Female

DRUGS (3)
  1. RIFAXIMIN [Suspect]
     Active Substance: RIFAXIMIN
     Indication: Overgrowth bacterial
     Dosage: COATED TABLET
     Route: 048
     Dates: start: 20230918, end: 20230921
  2. PREDNISONE [Interacting]
     Active Substance: PREDNISONE
     Indication: Scleroderma
     Route: 048
     Dates: end: 20230928
  3. METHOTREXATE [Interacting]
     Active Substance: METHOTREXATE
     Indication: Scleroderma
     Route: 058

REACTIONS (2)
  - Stomatitis [Recovering/Resolving]
  - Herpes virus infection [Recovering/Resolving]

NARRATIVE: CASE EVENT DATE: 20230924
